FAERS Safety Report 20695344 (Version 1)
Quarter: 2022Q2

REPORT INFORMATION
  Report Type: Spontaneous
  Country: US (occurrence: US)
  Receive Date: 20220411
  Receipt Date: 20220411
  Transmission Date: 20220721
  Serious: No
  Sender: FDA-Public Use
  Company Number: US-Blueprint Medicines Corporation-SP-US-2022-000880

PATIENT
  Sex: Female

DRUGS (1)
  1. AYVAKIT [Suspect]
     Active Substance: AVAPRITINIB
     Indication: Systemic mastocytosis
     Route: 048
     Dates: start: 20210715

REACTIONS (10)
  - Bone pain [Unknown]
  - Lacrimation increased [Unknown]
  - Gastric disorder [Unknown]
  - Nasal congestion [Unknown]
  - Depressed mood [Unknown]
  - Feeling abnormal [Unknown]
  - Fatigue [Unknown]
  - Retinal disorder [Unknown]
  - Eye pain [Unknown]
  - Drug ineffective [Unknown]
